FAERS Safety Report 21104909 (Version 1)
Quarter: 2022Q3

REPORT INFORMATION
  Report Type: Spontaneous
  Country: US (occurrence: US)
  Receive Date: 20220720
  Receipt Date: 20220720
  Transmission Date: 20221027
  Serious: No
  Sender: FDA-Public Use
  Company Number: US-BIOGEN-2021BI01026488

PATIENT
  Sex: Female

DRUGS (6)
  1. TYSABRI [Suspect]
     Active Substance: NATALIZUMAB
     Indication: Multiple sclerosis
     Route: 050
     Dates: start: 20210114
  2. TYSABRI [Suspect]
     Active Substance: NATALIZUMAB
     Route: 050
     Dates: start: 20091112, end: 20121024
  3. TYSABRI [Suspect]
     Active Substance: NATALIZUMAB
     Dosage: INFUSE EVER 4-8 WEEKS
     Route: 050
     Dates: start: 20121218, end: 20130424
  4. TYSABRI [Suspect]
     Active Substance: NATALIZUMAB
     Route: 050
     Dates: start: 20130731, end: 20140203
  5. AMOXICILLIN [Concomitant]
     Active Substance: AMOXICILLIN
     Route: 050
  6. DOXYCYCLINE HYDROCHLORIDE [Concomitant]
     Active Substance: DOXYCYCLINE HYDROCHLORIDE
     Route: 050

REACTIONS (2)
  - Prescribed underdose [Unknown]
  - Viral infection [Unknown]
